FAERS Safety Report 9081200 (Version 1)
Quarter: 2013Q1

REPORT INFORMATION
  Report Type: Spontaneous
  Country: US (occurrence: US)
  Receive Date: 20130130
  Receipt Date: 20130130
  Transmission Date: 20140127
  Serious: Yes (Other)
  Sender: FDA-Public Use
  Company Number: US-OTSUKA-US-2013-10108

PATIENT
  Age: 49 Year
  Sex: Male

DRUGS (2)
  1. SAMSCA [Suspect]
     Indication: BLOOD SODIUM DECREASED
     Dosage: UNK DOSE 2-3 TABLETS
     Dates: start: 20130115
  2. SAMSCA [Suspect]
     Dosage: UNK

REACTIONS (1)
  - Blood sodium increased [Unknown]
